FAERS Safety Report 23405360 (Version 1)
Quarter: 2024Q1

REPORT INFORMATION
  Report Type: Spontaneous
  Country: US (occurrence: None)
  Receive Date: 20240112
  Receipt Date: 20240112
  Transmission Date: 20240410
  Serious: Yes (Hospitalization)
  Sender: FDA-Public Use
  Company Number: None

PATIENT
  Age: 78 Year
  Sex: Male

DRUGS (11)
  1. NUPLAZID [Suspect]
     Active Substance: PIMAVANSERIN TARTRATE
     Indication: Parkinson^s disease psychosis
     Dosage: FREQUENCY : DAILY;?
     Route: 048
     Dates: start: 20230417
  2. RAMIPRIL [Concomitant]
     Active Substance: RAMIPRIL
  3. TERAZOSIN [Concomitant]
     Active Substance: TERAZOSIN HYDROCHLORIDE
  4. RIVASTIGMINE [Concomitant]
     Active Substance: RIVASTIGMINE
  5. VITAMIN D3 [Concomitant]
     Active Substance: CHOLECALCIFEROL
  6. VILAZODONE [Concomitant]
     Active Substance: VILAZODONE
  7. IRON [Concomitant]
     Active Substance: IRON
  8. CARBIDOPA\LEVODOPA [Concomitant]
     Active Substance: CARBIDOPA\LEVODOPA
  9. DUOPA [Concomitant]
     Active Substance: CARBIDOPA\LEVODOPA
  10. RYTARY [Concomitant]
     Active Substance: CARBIDOPA\LEVODOPA
  11. VITAMINS [Concomitant]
     Active Substance: VITAMINS

REACTIONS (2)
  - Urinary tract infection [None]
  - Fluid retention [None]

NARRATIVE: CASE EVENT DATE: 20231225
